FAERS Safety Report 21963095 (Version 1)
Quarter: 2023Q1

REPORT INFORMATION
  Report Type: Report from Study
  Country: US (occurrence: US)
  Receive Date: 20230207
  Receipt Date: 20230207
  Transmission Date: 20230418
  Serious: Yes (Hospitalization)
  Sender: FDA-Public Use
  Company Number: US-AMRYT PHARMACEUTICALS DAC-AEGR006142

PATIENT
  Age: 29 Year
  Sex: Female

DRUGS (9)
  1. METRELEPTIN [Suspect]
     Active Substance: METRELEPTIN
     Indication: Familial partial lipodystrophy
     Dosage: 5 MILLIGRAM, 5 MILLIGRAM (1ML OR 100UNITS UNDER THE SKIN), BID
     Route: 058
     Dates: start: 20190111, end: 20201028
  2. METRELEPTIN [Suspect]
     Active Substance: METRELEPTIN
     Dosage: 5 MILLIGRAM, BID
     Route: 058
     Dates: start: 20201029
  3. ZOFRAN [Concomitant]
     Active Substance: ONDANSETRON HYDROCHLORIDE
     Indication: Nausea
     Dosage: 4 MILLIGRAM, PRN
     Route: 060
     Dates: start: 20181104
  4. ZOFRAN [Concomitant]
     Active Substance: ONDANSETRON HYDROCHLORIDE
     Indication: Vomiting
     Dosage: 4 MILLIGRAM, PRN
     Route: 048
     Dates: start: 20210923
  5. ZOFRAN [Concomitant]
     Active Substance: ONDANSETRON HYDROCHLORIDE
     Indication: Pancreatitis relapsing
     Dosage: 4 MILLIGRAM, PRN Q 6 HRS
     Route: 042
     Dates: start: 20210920, end: 20210923
  6. ZOFRAN [Concomitant]
     Active Substance: ONDANSETRON HYDROCHLORIDE
     Indication: Pancreatitis
  7. CREON [Concomitant]
     Active Substance: PANCRELIPASE AMYLASE\PANCRELIPASE LIPASE\PANCRELIPASE PROTEASE
     Indication: Pancreatitis relapsing
     Dosage: 1 DOSAGE FORM, TID
     Route: 048
     Dates: start: 20210610
  8. FENOFIBRATE [Concomitant]
     Active Substance: FENOFIBRATE
     Indication: Hypertriglyceridaemia
     Dosage: 145 MILLIGRAM, QD
     Route: 048
     Dates: start: 20200609
  9. MS CONTIN [Concomitant]
     Active Substance: MORPHINE SULFATE
     Indication: Pancreatitis relapsing
     Dosage: 60 MILLIGRAM, PRN
     Route: 048
     Dates: start: 20210525

REACTIONS (2)
  - Pancreatitis [Recovered/Resolved with Sequelae]
  - Off label use [Unknown]

NARRATIVE: CASE EVENT DATE: 20221027
